FAERS Safety Report 21517914 (Version 1)
Quarter: 2022Q4

REPORT INFORMATION
  Report Type: Report from Study
  Country: CA (occurrence: CA)
  Receive Date: 20221028
  Receipt Date: 20221028
  Transmission Date: 20230113
  Serious: Yes (Other)
  Sender: FDA-Public Use
  Company Number: CA-JNJFOC-20221051910

PATIENT
  Sex: Male
  Weight: 64 kg

DRUGS (2)
  1. REMICADE [Suspect]
     Active Substance: INFLIXIMAB
     Indication: Crohn^s disease
     Route: 042
     Dates: start: 20200429
  2. REMICADE [Suspect]
     Active Substance: INFLIXIMAB
     Dosage: DOCTOR REQUESTED AN URGENT STAT DOSE TO 800MG IV THEN CONTINUE 800MG IV EVERY 6 WEEKS
     Route: 042

REACTIONS (2)
  - Crohn^s disease [Unknown]
  - Steroid dependence [Unknown]
